FAERS Safety Report 10373243 (Version 1)
Quarter: 2014Q3

REPORT INFORMATION
  Report Type: Spontaneous
  Country: US (occurrence: US)
  Receive Date: 20140808
  Receipt Date: 20140808
  Transmission Date: 20150326
  Serious: No
  Sender: FDA-Public Use
  Company Number: US-BRISTOL-MYERS SQUIBB COMPANY-20281481

PATIENT
  Age: 81 Year
  Sex: Male
  Weight: 102.49 kg

DRUGS (1)
  1. SPRYCEL [Suspect]
     Active Substance: DASATINIB
     Indication: MYELOID LEUKAEMIA
     Dates: start: 20140211

REACTIONS (4)
  - Hydrocele [Unknown]
  - Diarrhoea [Unknown]
  - Chills [Unknown]
  - Nausea [Recovered/Resolved]
